FAERS Safety Report 7579610-9 (Version None)
Quarter: 2011Q2

REPORT INFORMATION
  Report Type: 
  Country: None (occurrence: None)
  Receive Date: 20110629
  Receipt Date: 20100910
  Transmission Date: 20111010
  Serious: No
  Sender: FDA-Public Use
  Company Number: US-BAYER-201036243NA

PATIENT
  Age: 27 Year
  Sex: Female

DRUGS (1)
  1. MIRENA [Suspect]
     Indication: CONTRACEPTION
     Dosage: 20 ?G/D, CONT
     Route: 015
     Dates: start: 20100903, end: 20100903

REACTIONS (5)
  - NAUSEA [None]
  - DIZZINESS [None]
  - MUSCLE SPASMS [None]
  - PROCEDURAL PAIN [None]
  - PAIN [None]
